FAERS Safety Report 10595220 (Version 1)
Quarter: 2014Q4

REPORT INFORMATION
  Report Type: Spontaneous
  Country: DE (occurrence: DE)
  Receive Date: 20141120
  Receipt Date: 20141120
  Transmission Date: 20150529
  Serious: Yes (Congenital Anomaly, Other)
  Sender: FDA-Public Use
  Company Number: DE-UCBSA-2014018705

PATIENT
  Age: 0 Day
  Sex: Male
  Weight: 2.9 kg

DRUGS (18)
  1. TOPAMAX [Suspect]
     Active Substance: TOPIRAMATE
     Indication: IDIOPATHIC GENERALISED EPILEPSY
     Dosage: 100 MG, 2X/DAY (BID)
     Route: 064
     Dates: start: 2013, end: 20131011
  2. DIAZEPAM. [Concomitant]
     Active Substance: DIAZEPAM
     Indication: IDIOPATHIC GENERALISED EPILEPSY
     Dosage: UNK
     Route: 064
     Dates: start: 201306, end: 2013
  3. ERGENYL CHRONO [Suspect]
     Active Substance: VALPROIC ACID
     Indication: IDIOPATHIC GENERALISED EPILEPSY
     Dosage: 1200 MG, 3X/DAY (TID)
     Route: 064
     Dates: start: 20130625, end: 20131011
  4. PASPERTIN [Concomitant]
     Active Substance: METOCLOPRAMIDE HYDROCHLORIDE
     Indication: ILEUS PARALYTIC
     Dosage: UNK
     Route: 064
     Dates: start: 201306, end: 2013
  5. KEPPRA [Suspect]
     Active Substance: LEVETIRACETAM
     Indication: IDIOPATHIC GENERALISED EPILEPSY
     Dosage: UNK
     Route: 064
     Dates: start: 2013, end: 2013
  6. LORAZEPAM. [Concomitant]
     Active Substance: LORAZEPAM
     Indication: IDIOPATHIC GENERALISED EPILEPSY
     Dosage: 5 MG, ONCE DAILY (QD)
     Route: 064
     Dates: start: 20130624, end: 2013
  7. CEFUROXIM [Concomitant]
     Active Substance: CEFUROXIME
     Indication: URINARY TRACT INFECTION BACTERIAL
     Dosage: UNK
     Route: 064
     Dates: start: 201306, end: 2013
  8. VITAMIN B12 [Concomitant]
     Active Substance: CYANOCOBALAMIN
     Indication: VITAMIN B12 DEFICIENCY
     Dosage: UNK, MONTHLY (QM)
     Route: 064
     Dates: start: 201306, end: 2013
  9. KEPPRA [Suspect]
     Active Substance: LEVETIRACETAM
     Indication: IDIOPATHIC GENERALISED EPILEPSY
     Dosage: 250 MG, 3X/DAY (TID)
     Route: 064
     Dates: start: 2013, end: 2013
  10. LAMOTRIGINE. [Concomitant]
     Active Substance: LAMOTRIGINE
     Indication: IDIOPATHIC GENERALISED EPILEPSY
     Dosage: 100 MG, 2X/DAY (BID)
     Route: 064
     Dates: start: 201306, end: 201305
  11. MIDAZOLAM [Concomitant]
     Active Substance: MIDAZOLAM\MIDAZOLAM HYDROCHLORIDE
     Indication: IDIOPATHIC GENERALISED EPILEPSY
     Dosage: UNK
     Route: 064
     Dates: start: 20130625, end: 20130703
  12. KEPPRA [Suspect]
     Active Substance: LEVETIRACETAM
     Dosage: 1000 MG, 3X/DAY (TID)
     Route: 064
     Dates: start: 2013, end: 20131011
  13. VITAMIN B 6 [Concomitant]
     Indication: VITAMIN B6 DEFICIENCY
     Dosage: 175 ?G/D
     Route: 064
     Dates: start: 201306, end: 2013
  14. FOLSAN [Concomitant]
     Active Substance: FOLIC ACID
     Indication: NEURAL TUBE DEFECT
     Dosage: 5 MG, ONCE DAILY (QD)
     Route: 064
     Dates: start: 201306, end: 2013
  15. FRISIUM [Suspect]
     Active Substance: CLOBAZAM
     Indication: IDIOPATHIC GENERALISED EPILEPSY
     Dosage: 5 MG, 3X/DAY (TID)
     Route: 064
     Dates: start: 2013, end: 20131011
  16. PROPOFOL. [Concomitant]
     Active Substance: PROPOFOL
     Indication: IDIOPATHIC GENERALISED EPILEPSY
     Dosage: UNK
     Route: 064
     Dates: start: 20130625, end: 20130703
  17. AMPICILLIN [Concomitant]
     Active Substance: AMPICILLIN
     Indication: URINARY TRACT INFECTION BACTERIAL
     Dosage: UNK
     Route: 064
     Dates: start: 201306, end: 2013
  18. NEOSTIGMINE [Concomitant]
     Active Substance: NEOSTIGMINE
     Indication: ILEUS PARALYTIC
     Dosage: UNK
     Route: 064
     Dates: start: 201306, end: 2013

REACTIONS (12)
  - Low set ears [Not Recovered/Not Resolved]
  - Atrial septal defect [Not Recovered/Not Resolved]
  - Prominent epicanthal folds [Not Recovered/Not Resolved]
  - Premature baby [Recovering/Resolving]
  - Floppy infant [Recovered/Resolved]
  - Low birth weight baby [Unknown]
  - Retrognathia [Not Recovered/Not Resolved]
  - Neonatal respiratory distress syndrome [Recovered/Resolved]
  - Foetal exposure during pregnancy [Unknown]
  - Small for dates baby [Recovering/Resolving]
  - Bradycardia neonatal [Recovered/Resolved]
  - Metabolic acidosis [Recovered/Resolved]

NARRATIVE: CASE EVENT DATE: 20131011
